FAERS Safety Report 7173613-4 (Version None)
Quarter: 2010Q4

REPORT INFORMATION
  Report Type: 
  Country: None (occurrence: None)
  Receive Date: 20101202
  Receipt Date: 20101117
  Transmission Date: 20110411
  Serious: Yes (Hospitalization)
  Sender: FDA-Public Use
  Company Number: GER/GER/10/0016663

PATIENT
  Age: 69 Year
  Sex: Female

DRUGS (5)
  1. RAMIPRIL [Suspect]
     Indication: PRODUCT USED FOR UNKNOWN INDICATION
     Dosage: 2.5 MG, 1 IN 1 D, ORAL
     Route: 048
     Dates: end: 20100713
  2. ELONTRIL (BUPROPION) [Suspect]
     Indication: PRODUCT USED FOR UNKNOWN INDICATION
     Dosage: 75 MG, 1 IN 1 D, ORAL
     Route: 048
     Dates: end: 20100708
  3. ASPIRIN [Concomitant]
  4. DIOVAN [Concomitant]
  5. ALLOPURINOL [Concomitant]

REACTIONS (1)
  - DERMATITIS ALLERGIC [None]
